FAERS Safety Report 18753469 (Version 1)
Quarter: 2021Q1

REPORT INFORMATION
  Report Type: Spontaneous
  Country: US (occurrence: US)
  Receive Date: 20210118
  Receipt Date: 20210118
  Transmission Date: 20210419
  Serious: Yes (Death, Hospitalization, Other)
  Sender: FDA-Public Use
  Company Number: US-BAUSCH-BL-2021-001262

PATIENT
  Age: 35 Year
  Sex: Female
  Weight: 59 kg

DRUGS (2)
  1. METHYLPHENIDATE. [Suspect]
     Active Substance: METHYLPHENIDATE
     Indication: PRODUCT USED FOR UNKNOWN INDICATION
     Route: 065
  2. BUPROPION HYDROCHLORIDE. [Suspect]
     Active Substance: BUPROPION HYDROCHLORIDE
     Indication: PRODUCT USED FOR UNKNOWN INDICATION
     Route: 048

REACTIONS (18)
  - Metabolic acidosis [Unknown]
  - Hyperhidrosis [Unknown]
  - Toxicity to various agents [Fatal]
  - Intentional overdose [Fatal]
  - Postictal state [Unknown]
  - Somnolence [Unknown]
  - Generalised tonic-clonic seizure [Recovered/Resolved]
  - Confusional state [Unknown]
  - Cardiac arrest [Unknown]
  - Circulatory collapse [Unknown]
  - Brain death [Unknown]
  - Sinus tachycardia [Unknown]
  - Electrocardiogram QRS complex prolonged [Unknown]
  - Seizure [Recovered/Resolved]
  - Status epilepticus [Unknown]
  - Bradycardia [Unknown]
  - Hypotension [Unknown]
  - Pain [Unknown]
